FAERS Safety Report 7789034-7 (Version None)
Quarter: 2011Q3

REPORT INFORMATION
  Report Type: 
  Country: None (occurrence: None)
  Receive Date: 20110930
  Receipt Date: 20110921
  Transmission Date: 20111222
  Serious: Yes (Other)
  Sender: FDA-Public Use
  Company Number: CA-JNJFOC-20110910408

PATIENT
  Age: 46 Year
  Sex: Female
  Weight: 88 kg

DRUGS (2)
  1. REMICADE [Suspect]
     Indication: CROHN'S DISEASE
     Route: 042
     Dates: start: 20100823
  2. ASACOL [Concomitant]

REACTIONS (4)
  - BRONCHIECTASIS [None]
  - SINUS CONGESTION [None]
  - LARYNGITIS [None]
  - RHINORRHOEA [None]
